FAERS Safety Report 19390504 (Version 1)
Quarter: 2021Q2

REPORT INFORMATION
  Report Type: Other
  Country: GB (occurrence: GB)
  Receive Date: 20210608
  Receipt Date: 20210608
  Transmission Date: 20210717
  Serious: Yes (Other)
  Sender: FDA-Public Use
  Company Number: GB-ROCHE-2842824

PATIENT
  Sex: Female

DRUGS (2)
  1. EVACAL D3 [Concomitant]
  2. ROACTEMRA [Suspect]
     Active Substance: TOCILIZUMAB
     Indication: RHEUMATOID ARTHRITIS
     Route: 058
     Dates: start: 20210428

REACTIONS (2)
  - Lower respiratory tract infection [Unknown]
  - Blood test abnormal [Unknown]
